FAERS Safety Report 25776973 (Version 1)
Quarter: 2025Q3

REPORT INFORMATION
  Report Type: Spontaneous
  Country: US (occurrence: US)
  Receive Date: 20250909
  Receipt Date: 20250909
  Transmission Date: 20251020
  Serious: No
  Sender: DOMPE FARMACEUTICI
  Company Number: US-FARMAPROD-202409-3307

PATIENT
  Age: 39 Year
  Sex: Female

DRUGS (2)
  1. OXERVATE [Suspect]
     Active Substance: CENEGERMIN-BKBJ
     Indication: Neurotrophic keratopathy
     Route: 047
     Dates: start: 20240821
  2. REFRESH PF [Concomitant]
     Dates: start: 202403

REACTIONS (10)
  - Pterygium operation [Recovered/Resolved]
  - Inappropriate schedule of product administration [Unknown]
  - Intentional product misuse [Unknown]
  - Product dose omission issue [Unknown]
  - Hypersensitivity [Unknown]
  - Eye pain [Unknown]
  - Dry eye [Unknown]
  - Periorbital swelling [Unknown]
  - Therapy interrupted [Unknown]
  - Eye irritation [Recovered/Resolved]

NARRATIVE: CASE EVENT DATE: 20241010
